FAERS Safety Report 7096455-7 (Version None)
Quarter: 2010Q4

REPORT INFORMATION
  Report Type: 
  Country: None (occurrence: None)
  Receive Date: 20101111
  Receipt Date: 20101101
  Transmission Date: 20110411
  Serious: Yes (Other)
  Sender: FDA-Public Use
  Company Number: IT-JNJFOC-20101101326

PATIENT
  Age: 32 Year
  Sex: Female

DRUGS (2)
  1. RISPERDAL [Suspect]
     Indication: ILL-DEFINED DISORDER
     Route: 048
  2. DEPAKENE [Suspect]
     Indication: ILL-DEFINED DISORDER
     Dosage: 20 TABLETS
     Route: 065

REACTIONS (3)
  - INTENTIONAL OVERDOSE [None]
  - SELF INJURIOUS BEHAVIOUR [None]
  - SLUGGISHNESS [None]
